FAERS Safety Report 8023692-7 (Version None)
Quarter: 2012Q1

REPORT INFORMATION
  Report Type: 
  Country: None (occurrence: None)
  Receive Date: 20120103
  Receipt Date: 20120103
  Transmission Date: 20120608
  Serious: No
  Sender: FDA-Public Use
  Company Number: None

PATIENT
  Sex: Male
  Weight: 62.1 kg

DRUGS (1)
  1. PEGINTERFERON ALFA-2A [Suspect]
     Dosage: 31 MCG

REACTIONS (6)
  - PYREXIA [None]
  - ARTHRALGIA [None]
  - CHILLS [None]
  - BLOOD CULTURE POSITIVE [None]
  - MYALGIA [None]
  - GRAM STAIN POSITIVE [None]
